FAERS Safety Report 6131322-4 (Version None)
Quarter: 2009Q1

REPORT INFORMATION
  Report Type: 
  Country: None (occurrence: None)
  Receive Date: 20090325
  Receipt Date: 20080506
  Transmission Date: 20090719
  Serious: Yes (Life-Threatening, Other)
  Sender: FDA-Public Use
  Company Number: US-BRISTOL-MYERS SQUIBB COMPANY-14116602

PATIENT
  Age: 69 Year
  Sex: Male

DRUGS (6)
  1. ERBITUX [Suspect]
     Indication: HEAD AND NECK CANCER
     Route: 042
     Dates: start: 20080225, end: 20080225
  2. ERBITUX [Suspect]
     Indication: LUNG NEOPLASM MALIGNANT
     Route: 042
     Dates: start: 20080225, end: 20080225
  3. TYLENOL [Concomitant]
  4. BENADRYL [Concomitant]
     Route: 042
  5. TARCEVA [Concomitant]
  6. RADIATION THERAPY [Concomitant]

REACTIONS (1)
  - ANAPHYLACTIC REACTION [None]
